FAERS Safety Report 17872151 (Version 2)
Quarter: 2020Q2

REPORT INFORMATION
  Report Type: Spontaneous
  Country: CO (occurrence: CO)
  Receive Date: 20200608
  Receipt Date: 20200617
  Transmission Date: 20200714
  Serious: Yes (Other)
  Sender: FDA-Public Use
  Company Number: CO-PFIZER INC-2020221446

PATIENT
  Age: 39 Year
  Sex: Female

DRUGS (1)
  1. REAMPLA [Suspect]
     Active Substance: PALBOCICLIB
     Indication: BREAST CANCER METASTATIC
     Dosage: 125 MG, CYCLIC (TAKE 21 DAYS AND REST 7 DAYS)
     Route: 048
     Dates: start: 20200523

REACTIONS (6)
  - Dyspnoea [Unknown]
  - Bone pain [Unknown]
  - Adnexa uteri pain [Unknown]
  - Burning sensation [Unknown]
  - Ovarian cyst [Unknown]
  - Malaise [Unknown]
